FAERS Safety Report 6385645-4 (Version None)
Quarter: 2009Q4

REPORT INFORMATION
  Report Type: 
  Country: None (occurrence: None)
  Receive Date: 20091002
  Receipt Date: 20081014
  Transmission Date: 20100525
  Serious: No
  Sender: FDA-Public Use
  Company Number: US-ASTRAZENECA-2008UW22641

PATIENT
  Age: 58 Year
  Sex: Female
  Weight: 96.2 kg

DRUGS (12)
  1. ARIMIDEX [Suspect]
     Route: 048
     Dates: end: 20060101
  2. TAMOXIFEN CITRATE [Suspect]
     Route: 048
  3. ALLOPURINOL [Concomitant]
  4. AVANDIA [Concomitant]
  5. CARTIA XT [Concomitant]
  6. GLUCOPHAGE [Concomitant]
  7. PROTONIX [Concomitant]
  8. HUMALOG [Concomitant]
  9. LANTUS [Concomitant]
  10. HUMULIN R [Concomitant]
  11. ZEGERID [Concomitant]
  12. LEVOTHYROXINE SODIUM [Concomitant]

REACTIONS (7)
  - ARTHROPATHY [None]
  - CARPAL TUNNEL SYNDROME [None]
  - MUSCLE DISORDER [None]
  - MUSCULOSKELETAL DISORDER [None]
  - TENDON DISORDER [None]
  - TENDONITIS [None]
  - TRIGGER FINGER [None]
